FAERS Safety Report 5001740-6 (Version None)
Quarter: 2006Q2

REPORT INFORMATION
  Report Type: 
  Country: None (occurrence: None)
  Receive Date: 20060512
  Receipt Date: 20060512
  Transmission Date: 20061013
  Serious: Yes (Hospitalization)
  Sender: FDA-Public Use
  Company Number: None

PATIENT
  Sex: Female
  Weight: 72.5755 kg

DRUGS (5)
  1. CELLCEPT [Suspect]
     Indication: RELAPSING-REMITTING MULTIPLE SCLEROSIS
     Dosage: 1 GRAM BID PO
     Route: 048
     Dates: start: 20060110
  2. AVONEX [Concomitant]
  3. NAPRELAN [Concomitant]
  4. PROVIGIL [Concomitant]
  5. TRENTAL [Concomitant]

REACTIONS (3)
  - DRUG INEFFECTIVE [None]
  - EYE PAIN [None]
  - MIGRAINE [None]
